FAERS Safety Report 5050445-4 (Version None)
Quarter: 2006Q3

REPORT INFORMATION
  Report Type: 
  Country: None (occurrence: None)
  Receive Date: 20060707
  Receipt Date: 20060622
  Transmission Date: 20061208
  Serious: Yes (Death)
  Sender: FDA-Public Use
  Company Number: 8017446

PATIENT
  Age: 45 Year
  Sex: Female
  Weight: 83 kg

DRUGS (6)
  1. KEPPRA [Suspect]
     Indication: EPILEPSY
     Dosage: 2000 MG /D
  2. KEPPRA [Suspect]
     Indication: EPILEPSY
     Dosage: 3000 MG /D PO
     Route: 048
     Dates: start: 20030501, end: 20060610
  3. TEGRETOL [Suspect]
     Indication: EPILEPSY
     Dosage: 300 MG 2/D PO
     Route: 048
     Dates: start: 19920101, end: 20060610
  4. ABILIFY [Suspect]
     Indication: PSYCHOTIC DISORDER
     Dosage: 30 MG /D PO
     Route: 048
     Dates: start: 20050201, end: 20060610
  5. CIPRAMIL [Suspect]
     Indication: DEPRESSION
     Dosage: 20 MG /D PO
     Route: 048
     Dates: start: 20031001, end: 20060610
  6. KEMADRIN [Suspect]
     Dosage: 5 MG 2/D PO
     Route: 048
     Dates: start: 19990901, end: 20060610

REACTIONS (7)
  - AGGRESSION [None]
  - CEREBRAL INFARCTION [None]
  - CONDITION AGGRAVATED [None]
  - CONVULSION [None]
  - IMPAIRED SELF-CARE [None]
  - MYOCARDIAL ISCHAEMIA [None]
  - WEIGHT INCREASED [None]
